FAERS Safety Report 16357152 (Version 1)
Quarter: 2019Q2

REPORT INFORMATION
  Report Type: Other
  Country: GB (occurrence: GB)
  Receive Date: 20190527
  Receipt Date: 20190527
  Transmission Date: 20190711
  Serious: Yes (Hospitalization)
  Sender: FDA-Public Use
  Company Number: GB-STRIDES ARCOLAB LIMITED-2019SP004407

PATIENT
  Age: 27 Month
  Sex: Female
  Weight: 12 kg

DRUGS (3)
  1. ERYTHROMYCIN. [Suspect]
     Active Substance: ERYTHROMYCIN
     Indication: INFECTION PROPHYLAXIS
     Dosage: 125 MG, UNKNOWN
     Route: 048
     Dates: start: 20180625, end: 20190426
  2. CETIRIZINE [Suspect]
     Active Substance: CETIRIZINE HYDROCHLORIDE
     Indication: DERMATITIS ALLERGIC
     Dosage: 5 MG PER DAY
     Route: 048
     Dates: start: 20181219, end: 20190426
  3. ECULIZUMAB [Suspect]
     Active Substance: ECULIZUMAB
     Indication: ATYPICAL HAEMOLYTIC URAEMIC SYNDROME
     Dosage: 300 MG EVERY 14 DAYS
     Route: 042
     Dates: start: 20180115

REACTIONS (3)
  - Jaundice [Unknown]
  - Liver function test increased [Recovered/Resolved]
  - Pruritus [Unknown]

NARRATIVE: CASE EVENT DATE: 20180426
